FAERS Safety Report 20700430 (Version 3)
Quarter: 2022Q2

REPORT INFORMATION
  Report Type: Spontaneous
  Country: NZ (occurrence: NZ)
  Receive Date: 20220412
  Receipt Date: 20220506
  Transmission Date: 20220721
  Serious: Yes (Hospitalization)
  Sender: FDA-Public Use
  Company Number: NZ-MYLANLABS-2022M1026206

PATIENT
  Sex: Female

DRUGS (2)
  1. CLOZARIL [Suspect]
     Active Substance: CLOZAPINE
     Indication: Schizophrenia
     Dosage: UNK
     Route: 048
     Dates: start: 20200702
  2. CLOZARIL [Suspect]
     Active Substance: CLOZAPINE
     Dosage: DECREASE IN CLOZAPINE DOSE
     Route: 048

REACTIONS (1)
  - Anxiety [Unknown]
